FAERS Safety Report 8192662-0 (Version None)
Quarter: 2012Q1

REPORT INFORMATION
  Report Type: 
  Country: None (occurrence: None)
  Receive Date: 20120308
  Receipt Date: 20120229
  Transmission Date: 20120608
  Serious: Yes (Hospitalization)
  Sender: FDA-Public Use
  Company Number: US-RB-035162-12

PATIENT
  Age: 78 Year
  Sex: Male

DRUGS (3)
  1. MUCINEX DM [Suspect]
     Indication: PRODUCT USED FOR UNKNOWN INDICATION
     Route: 048
  2. VERAPAMIL [Concomitant]
     Indication: CARDIAC DISORDER
  3. TRAMADOL HCL [Concomitant]
     Indication: BACK PAIN

REACTIONS (4)
  - DYSPNOEA [None]
  - WHEEZING [None]
  - MALAISE [None]
  - HEART RATE IRREGULAR [None]
